FAERS Safety Report 7881625 (Version 10)
Quarter: 2013Q3

REPORT INFORMATION
  Report Type: Spontaneous
  Country: US (occurrence: US)
  Receive Date: 20110401
  Receipt Date: 20130704
  Transmission Date: 20140515
  Serious: Yes (Other)
  Sender: FDA-Public Use
  Company Number: US-ROCHE-736576

PATIENT
  Age: 14 Year
  Sex: Female
  Weight: 59 kg

DRUGS (2)
  1. ACCUTANE [Suspect]
     Indication: ACNE CYSTIC
     Route: 048
     Dates: start: 19930707, end: 199311
  2. KENALOG [Concomitant]
     Dosage: 2.5 MG/ML, A TOTAL OF 1ML INJECTED.
     Route: 065

REACTIONS (9)
  - Colitis ulcerative [Unknown]
  - Crohn^s disease [Unknown]
  - Inflammatory bowel disease [Unknown]
  - Anal fistula [Unknown]
  - Anal abscess [Unknown]
  - Ileus [Unknown]
  - Osteopenia [Unknown]
  - Dry skin [Unknown]
  - Arthralgia [Unknown]
